FAERS Safety Report 7463651-6 (Version None)
Quarter: 2011Q2

REPORT INFORMATION
  Report Type: 
  Country: None (occurrence: None)
  Receive Date: 20110506
  Receipt Date: 20110503
  Transmission Date: 20111010
  Serious: Yes (Hospitalization, Other)
  Sender: FDA-Public Use
  Company Number: US-PFIZER INC-2011020806

PATIENT
  Sex: Male

DRUGS (3)
  1. CHANTIX [Suspect]
     Indication: SMOKING CESSATION THERAPY
     Dosage: STARTING PACK AND 1MG CONTINUING PACK
     Dates: start: 20070712, end: 20070912
  2. VITAMIN B-12 [Concomitant]
     Indication: VITAMIN SUPPLEMENTATION
     Dosage: UNK
     Dates: start: 20060101
  3. FOLIC ACID [Concomitant]
     Indication: VITAMIN SUPPLEMENTATION
     Dosage: UNK,
     Dates: start: 20060101

REACTIONS (6)
  - SUICIDE ATTEMPT [None]
  - ANXIETY [None]
  - DEPRESSION [None]
  - NIGHTMARE [None]
  - INTENTIONAL OVERDOSE [None]
  - INSOMNIA [None]
